FAERS Safety Report 6315628-1 (Version None)
Quarter: 2009Q3

REPORT INFORMATION
  Report Type: 
  Country: None (occurrence: None)
  Receive Date: 20090818
  Receipt Date: 20090804
  Transmission Date: 20100115
  Serious: Yes (Hospitalization)
  Sender: FDA-Public Use
  Company Number: 8050224

PATIENT
  Age: 39 Year
  Sex: Male

DRUGS (7)
  1. KEPPRA [Suspect]
     Indication: EPILEPSY
     Dosage: 250 MG 2/D PO
     Route: 048
     Dates: start: 20090501
  2. ACIDEX /01521901/ [Concomitant]
  3. CARBAMAZEPINE [Concomitant]
  4. LAMOTRIGINE [Concomitant]
  5. METFORMIN HCL [Concomitant]
  6. RANITIDINE [Concomitant]
  7. RISPERIDONE [Concomitant]

REACTIONS (1)
  - HYPONATRAEMIA [None]
